FAERS Safety Report 23593357 (Version 1)
Quarter: 2024Q1

REPORT INFORMATION
  Report Type: Spontaneous
  Country: US (occurrence: US)
  Receive Date: 20240304
  Receipt Date: 20240304
  Transmission Date: 20240409
  Serious: Yes (Other)
  Sender: FDA-Public Use
  Company Number: US-Covis Pharma GmbH-2024COV00221

PATIENT
  Age: 72 Year
  Sex: Male

DRUGS (2)
  1. RILUTEK [Suspect]
     Active Substance: RILUZOLE
     Route: 065
  2. RELYVRIO [Suspect]
     Active Substance: SODIUM PHENYLBUTYRATE\TAURURSODIOL
     Indication: Amyotrophic lateral sclerosis
     Dosage: 1 DOSAGE FORM 1 SACHET ONCE DAILY FOR FIRST 3 WEEKS THEN ONE SACHET TWICE DAILY, 2/DAYS
     Route: 048
     Dates: start: 20230221, end: 20230618

REACTIONS (4)
  - Jaw fracture [Unknown]
  - Fall [Unknown]
  - Dizziness [Unknown]
  - Scratch [Unknown]
